FAERS Safety Report 5345718-1 (Version None)
Quarter: 2007Q2

REPORT INFORMATION
  Report Type: 
  Country: None (occurrence: None)
  Receive Date: 20070605
  Receipt Date: 20070524
  Transmission Date: 20071010
  Serious: Yes (Hospitalization)
  Sender: FDA-Public Use
  Company Number: FR-AVENTIS-200714725GDDC

PATIENT
  Age: 8 Year
  Sex: Male
  Weight: 26 kg

DRUGS (11)
  1. KIDROLASE [Suspect]
     Dosage: DOSE: 10,000
     Route: 042
     Dates: start: 20070407, end: 20070414
  2. CERUBIDINE [Suspect]
     Route: 042
     Dates: start: 20070404, end: 20070425
  3. STEROGYL                           /00765501/ [Suspect]
     Dosage: DOSE: UNK
  4. SOLUPRED                           /00016201/ [Suspect]
     Dosage: DOSE: UNK
  5. LOVENOX [Suspect]
     Dosage: DOSE: UNK
  6. VINCRISTINE [Suspect]
     Route: 042
     Dates: start: 20070404, end: 20070425
  7. ONCASPAR [Suspect]
     Dosage: DOSE: 2,500
     Dates: start: 20070420, end: 20070420
  8. SOLU-MEDROL [Suspect]
     Route: 042
     Dates: start: 20070404
  9. METHOTREXATE [Suspect]
     Route: 037
     Dates: start: 20070405, end: 20070405
  10. OMEPRAZOLE [Suspect]
     Route: 048
  11. OSTRAM                             /00183801/ [Suspect]
     Dosage: DOSE: UNK

REACTIONS (2)
  - CARDIAC MURMUR [None]
  - CARDIOMYOPATHY [None]
